FAERS Safety Report 23357660 (Version 1)
Quarter: 2023Q4

REPORT INFORMATION
  Report Type: Spontaneous
  Country: US (occurrence: None)
  Receive Date: 20231229
  Receipt Date: 20231229
  Transmission Date: 20240109
  Serious: Yes (Hospitalization)
  Sender: FDA-Public Use
  Company Number: None

PATIENT

DRUGS (2)
  1. AZITHROMYCIN [Suspect]
     Active Substance: AZITHROMYCIN
  2. ROCEPHIN [Suspect]
     Active Substance: CEFTRIAXONE SODIUM

REACTIONS (4)
  - Ventricular tachycardia [None]
  - Cardiac failure congestive [None]
  - Documented hypersensitivity to administered product [None]
  - Drug monitoring procedure not performed [None]

NARRATIVE: CASE EVENT DATE: 20230907
